FAERS Safety Report 9839866 (Version 1)
Quarter: 2014Q1

REPORT INFORMATION
  Report Type: Spontaneous
  Country: CA (occurrence: CA)
  Receive Date: 20140124
  Receipt Date: 20140124
  Transmission Date: 20141002
  Serious: Yes (Other)
  Sender: FDA-Public Use
  Company Number: CHPA2014CA001035

PATIENT
  Sex: Female

DRUGS (6)
  1. THRIVE LOZENGE 2MG [Suspect]
     Indication: SMOKING CESSATION THERAPY
     Dosage: UNK, PRN
     Route: 048
     Dates: start: 20140110
  2. THRIVE LOZENGE 2MG [Suspect]
     Dosage: UNK, PRN
     Route: 048
  3. THRIVE 4 MG [Suspect]
     Indication: SMOKING CESSATION THERAPY
     Dosage: UNK, PRN
     Route: 048
     Dates: start: 20140110
  4. THRIVE 4 MG [Suspect]
     Dosage: 2 DF, QD PRN
     Route: 048
  5. PRIVATE LABEL [Suspect]
     Indication: SMOKING CESSATION THERAPY
     Dosage: 21 MG, QD
     Route: 062
     Dates: start: 20140110
  6. PRIVATE LABEL [Suspect]
     Dosage: 1 TO 2 PATCHES, QD
     Route: 062

REACTIONS (4)
  - Blood glucose increased [Recovering/Resolving]
  - Incorrect dose administered [Unknown]
  - Incorrect drug administration duration [Unknown]
  - Drug administration error [Unknown]
